FAERS Safety Report 10354754 (Version 1)
Quarter: 2014Q3

REPORT INFORMATION
  Report Type: Spontaneous
  Country: GB (occurrence: GB)
  Receive Date: 20140731
  Receipt Date: 20140731
  Transmission Date: 20150326
  Serious: Yes (Hospitalization)
  Sender: FDA-Public Use
  Company Number: GB-ACTAVIS-2014-16285

PATIENT
  Age: 62 Year
  Sex: Male
  Weight: 76 kg

DRUGS (6)
  1. MST CONTINUS [Concomitant]
     Active Substance: MORPHINE SULFATE
     Indication: PAIN
     Dosage: 50 MG, BID
     Route: 065
     Dates: start: 20140513
  2. ABRAXANE [Suspect]
     Active Substance: PACLITAXEL
     Indication: PANCREATIC CARCINOMA METASTATIC
     Dosage: 225 MG, UNKNOWN
     Route: 041
     Dates: start: 20140526
  3. ORAMORPH SR SUSTAINED RELEASE [Concomitant]
     Active Substance: MORPHINE SULFATE
     Indication: PAIN
     Dosage: 10 MG, UNKNOWN
     Route: 065
     Dates: start: 201403
  4. GEMCITABINE [Suspect]
     Active Substance: GEMCITABINE\GEMCITABINE HYDROCHLORIDE
     Indication: PANCREATIC CARCINOMA METASTATIC
     Dosage: 1800 MG, UNKNOWN
     Route: 065
     Dates: start: 20140526
  5. CO-DANTHRAMER [Concomitant]
     Indication: CONSTIPATION
     Dosage: UNK UNK, DAILY. 37.5/500
     Route: 065
     Dates: start: 20140520
  6. METOCLOPRAMIDE. [Concomitant]
     Active Substance: METOCLOPRAMIDE
     Indication: NAUSEA
     Dosage: 10 MG, TID
     Route: 065
     Dates: start: 20140520

REACTIONS (2)
  - Hypokinesia [Unknown]
  - Cerebrovascular accident [Unknown]

NARRATIVE: CASE EVENT DATE: 20140527
